FAERS Safety Report 9397043 (Version 1)
Quarter: 2013Q3

REPORT INFORMATION
  Report Type: Spontaneous
  Country: US (occurrence: US)
  Receive Date: 20130712
  Receipt Date: 20130712
  Transmission Date: 20140515
  Serious: No
  Sender: FDA-Public Use
  Company Number: US-PFIZER INC-2013203947

PATIENT
  Age: 52 Year
  Sex: Male
  Weight: 79.37 kg

DRUGS (5)
  1. NEURONTIN [Suspect]
     Indication: PERIODIC LIMB MOVEMENT DISORDER
     Dosage: 150 MG, 1X/DAY
     Dates: start: 2013
  2. TRAZODONE [Suspect]
     Indication: INSOMNIA
     Dosage: UNK
  3. LUNESTA [Suspect]
     Indication: INSOMNIA
     Dosage: UNK
     Dates: start: 2013
  4. SEROQUEL [Suspect]
     Indication: MOOD SWINGS
     Dosage: UNK
  5. SEROQUEL [Suspect]
     Dosage: 25 MG, UNK

REACTIONS (3)
  - Feeling of despair [Unknown]
  - Drug ineffective [Unknown]
  - Off label use [Unknown]
